FAERS Safety Report 10093980 (Version 2)
Quarter: 2014Q2

REPORT INFORMATION
  Report Type: Spontaneous
  Country: US (occurrence: US)
  Receive Date: 20140421
  Receipt Date: 20140605
  Transmission Date: 20141212
  Serious: No
  Sender: FDA-Public Use
  Company Number: US-009507513-1404USA005122

PATIENT
  Age: 72 Year
  Sex: Male

DRUGS (1)
  1. NASONEX [Suspect]
     Dosage: 1 SPRAY IN EACH NOSTRIL DAILY
     Route: 045
     Dates: start: 20140401

REACTIONS (3)
  - Drug dose omission [Unknown]
  - Product container issue [Unknown]
  - No adverse event [Unknown]
